FAERS Safety Report 6720181-4 (Version None)
Quarter: 2010Q2

REPORT INFORMATION
  Report Type: 
  Country: None (occurrence: None)
  Receive Date: 20100511
  Receipt Date: 20100120
  Transmission Date: 20101027
  Serious: No
  Sender: FDA-Public Use
  Company Number: GXKR2009GB13966

PATIENT

DRUGS (1)
  1. CLARITHROMYCIN [Suspect]
     Route: 048

REACTIONS (2)
  - GLOSSITIS [None]
  - GLOSSODYNIA [None]
